FAERS Safety Report 16596400 (Version 1)
Quarter: 2019Q3

REPORT INFORMATION
  Report Type: Spontaneous
  Country: US (occurrence: US)
  Receive Date: 20190718
  Receipt Date: 20190718
  Transmission Date: 20191004
  Serious: Yes (Other)
  Sender: FDA-Public Use
  Company Number: None

PATIENT
  Sex: Female

DRUGS (2)
  1. CYCLOBENZAPRINE. [Suspect]
     Active Substance: CYCLOBENZAPRINE
  2. METHOCARBAMOL. [Suspect]
     Active Substance: METHOCARBAMOL

REACTIONS (1)
  - Treatment failure [None]
